FAERS Safety Report 10457636 (Version 1)
Quarter: 2014Q3

REPORT INFORMATION
  Report Type: Spontaneous
  Country: AU (occurrence: AU)
  Receive Date: 20140916
  Receipt Date: 20140916
  Transmission Date: 20150326
  Serious: Yes (Hospitalization)
  Sender: FDA-Public Use
  Company Number: AU-GLAXOSMITHKLINE-B1033985A

PATIENT
  Age: 40 Year
  Sex: Male

DRUGS (1)
  1. NICABATE [Suspect]
     Active Substance: NICOTINE
     Indication: EX-TOBACCO USER
     Dosage: 2.5MG SINGLE DOSE
     Route: 048
     Dates: start: 20140911, end: 20140911

REACTIONS (5)
  - Anaphylactic shock [Unknown]
  - Posture abnormal [Unknown]
  - Loss of consciousness [Unknown]
  - Erythema [Unknown]
  - Hypertension [Unknown]

NARRATIVE: CASE EVENT DATE: 20140911
